FAERS Safety Report 25659551 (Version 1)
Quarter: 2025Q3

REPORT INFORMATION
  Report Type: Spontaneous
  Country: US (occurrence: None)
  Receive Date: 20250807
  Receipt Date: 20250807
  Transmission Date: 20251021
  Serious: Yes (Other)
  Sender: FDA-CTU
  Company Number: None

PATIENT
  Age: 55 Year
  Sex: Female

DRUGS (1)
  1. WEZLANA [Suspect]
     Active Substance: USTEKINUMAB-AUUB

REACTIONS (7)
  - Palpitations [None]
  - Chest pain [None]
  - Hypoaesthesia [None]
  - Paresis [None]
  - Electrocardiogram abnormal [None]
  - Product dose omission issue [None]
  - Anxiety [None]
